FAERS Safety Report 11822321 (Version 3)
Quarter: 2016Q2

REPORT INFORMATION
  Report Type: Spontaneous
  Country: US (occurrence: US)
  Receive Date: 20151210
  Receipt Date: 20160517
  Transmission Date: 20160815
  Serious: No
  Sender: FDA-Public Use
  Company Number: US-JNJFOC-20150800708

PATIENT
  Age: 58 Year
  Sex: Male

DRUGS (16)
  1. IMBRUVICA [Suspect]
     Active Substance: IBRUTINIB
     Indication: CHRONIC LYMPHOCYTIC LEUKAEMIA
     Route: 048
     Dates: start: 20150508, end: 20151201
  2. PRILOSEC [Concomitant]
     Active Substance: OMEPRAZOLE MAGNESIUM
  3. SINGULAIR [Concomitant]
     Active Substance: MONTELUKAST SODIUM
  4. MULTI VITAMIN [Concomitant]
     Active Substance: VITAMINS
  5. PROAIR HFA [Concomitant]
     Active Substance: ALBUTEROL SULFATE
  6. BENADRYL [Concomitant]
     Active Substance: DIPHENHYDRAMINE HYDROCHLORIDE
  7. MORPHINE SULFATE. [Concomitant]
     Active Substance: MORPHINE SULFATE
  8. TRAZODONE [Concomitant]
     Active Substance: TRAZODONE HYDROCHLORIDE
  9. DOXYCYCLINE. [Concomitant]
     Active Substance: DOXYCYCLINE
  10. BABY ASPIRIN [Concomitant]
     Active Substance: ASPIRIN
  11. COREG [Concomitant]
     Active Substance: CARVEDILOL
  12. GABAPENTIN. [Concomitant]
     Active Substance: GABAPENTIN
  13. CYCLOBENZAPRINE [Concomitant]
     Active Substance: CYCLOBENZAPRINE
  14. XANAX [Concomitant]
     Active Substance: ALPRAZOLAM
  15. ALLOPURINOL. [Concomitant]
     Active Substance: ALLOPURINOL
  16. NORTRIPTYLINE [Concomitant]
     Active Substance: NORTRIPTYLINE

REACTIONS (18)
  - Balance disorder [Unknown]
  - Fatigue [Unknown]
  - Bone pain [Unknown]
  - Nausea [Unknown]
  - Pyrexia [Unknown]
  - Gait disturbance [Unknown]
  - Arthralgia [Unknown]
  - Dry mouth [Recovering/Resolving]
  - Drug ineffective [Recovered/Resolved]
  - Amnesia [Not Recovered/Not Resolved]
  - Back pain [Unknown]
  - Contusion [Recovering/Resolving]
  - Diarrhoea [Unknown]
  - Pain in extremity [Unknown]
  - Abdominal pain [Unknown]
  - Myalgia [Unknown]
  - Headache [Unknown]
  - Asthenia [Unknown]

NARRATIVE: CASE EVENT DATE: 2015
